FAERS Safety Report 4802635-0 (Version None)
Quarter: 2005Q4

REPORT INFORMATION
  Report Type: 
  Country: None (occurrence: None)
  Receive Date: 20051014
  Receipt Date: 20050505
  Transmission Date: 20060501
  Serious: Yes (Other)
  Sender: FDA-Public Use
  Company Number: 2005071191

PATIENT
  Age: 46 Year
  Sex: Female
  Weight: 56.6996 kg

DRUGS (3)
  1. NEURONTIN [Suspect]
     Indication: BIPOLAR DISORDER
     Dosage: 1800 MG (1 IN 1 D), ORAL
     Route: 048
     Dates: start: 20010101, end: 20040101
  2. VENLAFAXINE HCL [Concomitant]
  3. CLONAZEPAM [Concomitant]

REACTIONS (1)
  - SUICIDAL IDEATION [None]
